FAERS Safety Report 14046696 (Version 1)
Quarter: 2017Q4

REPORT INFORMATION
  Report Type: Spontaneous
  Country: US (occurrence: US)
  Receive Date: 20171005
  Receipt Date: 20171005
  Transmission Date: 20180321
  Serious: Yes (Hospitalization)
  Sender: FDA-Public Use
  Company Number: US-INDIVIOR LIMITED-INDV-102561-2017

PATIENT
  Sex: Female

DRUGS (5)
  1. METHADONE [Suspect]
     Active Substance: METHADONE HYDROCHLORIDE
     Indication: PRODUCT USED FOR UNKNOWN INDICATION
     Dosage: UNK
     Route: 065
  2. SUBOXONE [Suspect]
     Active Substance: BUPRENORPHINE HYDROCHLORIDE\NALOXONE HYDROCHLORIDE
     Indication: DRUG USE DISORDER
     Dosage: UNK
     Route: 060
  3. SUBOXONE [Suspect]
     Active Substance: BUPRENORPHINE HYDROCHLORIDE\NALOXONE HYDROCHLORIDE
     Dosage: UNK
     Route: 060
  4. XANAX [Suspect]
     Active Substance: ALPRAZOLAM
     Indication: WITHDRAWAL SYNDROME
     Dosage: UNK
     Route: 065
  5. MARIJUANA [Suspect]
     Active Substance: CANNABIS SATIVA SUBSP. INDICA TOP
     Indication: DRUG WITHDRAWAL SYNDROME
     Dosage: UNK
     Route: 065

REACTIONS (7)
  - Drug withdrawal syndrome [Not Recovered/Not Resolved]
  - Drug abuse [Not Recovered/Not Resolved]
  - Substance abuse [Not Recovered/Not Resolved]
  - Constipation [Not Recovered/Not Resolved]
  - Drug detoxification [Recovered/Resolved]
  - Drug dependence [Recovered/Resolved]
  - Product preparation error [Not Recovered/Not Resolved]
